FAERS Safety Report 12790742 (Version 5)
Quarter: 2016Q4

REPORT INFORMATION
  Report Type: Report from Study
  Country: DE (occurrence: DE)
  Receive Date: 20160929
  Receipt Date: 20161228
  Transmission Date: 20170207
  Serious: Yes (Hospitalization)
  Sender: FDA-Public Use
  Company Number: DE-ROCHE-1834763

PATIENT
  Age: 58 Year
  Sex: Male
  Weight: 80 kg

DRUGS (5)
  1. NAB-PACLITAXEL [Suspect]
     Active Substance: PACLITAXEL
     Indication: NON-SMALL CELL LUNG CANCER
     Dosage: DATE OF THE MOST RECENT DOSE PRIOR TO AE ONSET: 08/SEP/2016 (199 MG) AT 15:05
     Route: 042
     Dates: start: 20160901
  2. CARBOPLATIN. [Suspect]
     Active Substance: CARBOPLATIN
     Indication: NON-SMALL CELL LUNG CANCER
     Dosage: AREA UNDER THE CONCENTRATION CURVE (AUC) 6 ON DAY 1 OF EACH 21-DAY CYCLE FOR 4 OR 6 CYCLES (AS PER P
     Route: 042
     Dates: start: 20160901
  3. AMOXICLAV [Concomitant]
     Active Substance: AMOXICILLIN\CLAVULANIC ACID
  4. ATEZOLIZUMAB [Suspect]
     Active Substance: ATEZOLIZUMAB
     Indication: NON-SMALL CELL LUNG CANCER
     Dosage: DATE OF THE MOST RECENT DOSE PRIOR TO AE ONSET: 01/SEP/2016 (1200 MG) AT 13:08
     Route: 042
     Dates: start: 20160901
  5. AUGMENTAN [Concomitant]
     Active Substance: AMOXICILLIN\CLAVULANATE POTASSIUM

REACTIONS (1)
  - Performance status decreased [Recovering/Resolving]

NARRATIVE: CASE EVENT DATE: 20160912
